FAERS Safety Report 19568257 (Version 1)
Quarter: 2021Q3

REPORT INFORMATION
  Report Type: Spontaneous
  Country: QA (occurrence: QA)
  Receive Date: 20210716
  Receipt Date: 20210716
  Transmission Date: 20211014
  Serious: Yes (Hospitalization, Other)
  Sender: FDA-Public Use
  Company Number: QA-AMNEAL PHARMACEUTICALS-2021-AMRX-02826

PATIENT
  Age: 32 Year
  Sex: Female

DRUGS (2)
  1. METHYLPREDNISOLONE SODIUM SUCCINATE. [Suspect]
     Active Substance: METHYLPREDNISOLONE SODIUM SUCCINATE
     Indication: SCIATICA
     Dosage: 80 MILLIGRAM, SINGLE
  2. LEVOBUPIVACAINE [Concomitant]
     Active Substance: LEVOBUPIVACAINE
     Indication: LOCAL ANAESTHESIA
     Dosage: 2 MILLILITER, SINGLE

REACTIONS (3)
  - Hyperaesthesia [Recovered/Resolved]
  - Radiculopathy [Recovered/Resolved]
  - Muscular weakness [Recovered/Resolved]
